FAERS Safety Report 23788456 (Version 2)
Quarter: 2024Q3

REPORT INFORMATION
  Report Type: Report from Study
  Country: CA (occurrence: CA)
  Receive Date: 20240426
  Receipt Date: 20240709
  Transmission Date: 20241016
  Serious: Yes (Other)
  Sender: OTSUKA
  Company Number: CA-OTSUKA-2021_028273

PATIENT
  Age: 76 Year
  Sex: Female

DRUGS (7)
  1. CEDAZURIDINE\DECITABINE [Suspect]
     Active Substance: CEDAZURIDINE\DECITABINE
     Indication: Myelodysplastic syndrome
     Dosage: 135MG (35 MG DECITABINE AND 100 MG CEDAZURIDINE) 1 OF 3 DAYS IN 28 DAYS
     Route: 065
     Dates: start: 20210809
  2. CEDAZURIDINE\DECITABINE [Suspect]
     Active Substance: CEDAZURIDINE\DECITABINE
     Dosage: UNK, QD (CYCLE 2 OF 5 DAYS IN 28 DAYS)
     Route: 065
  3. CEDAZURIDINE\DECITABINE [Suspect]
     Active Substance: CEDAZURIDINE\DECITABINE
     Dosage: UNK, QD (3 DAYS DOSE) IN 28 DAYS CYCLE
     Route: 065
     Dates: start: 20210502
  4. CEDAZURIDINE\DECITABINE [Suspect]
     Active Substance: CEDAZURIDINE\DECITABINE
     Dosage: 135MG (35 MG DECITABINE AND 100 MG CEDAZURIDINE), QD 1-5 TABLETS EVERY 28 DAYS CYCLE
     Route: 065
  5. CEDAZURIDINE\DECITABINE [Suspect]
     Active Substance: CEDAZURIDINE\DECITABINE
     Dosage: UNK (3 PILLS)
     Route: 065
  6. CEDAZURIDINE\DECITABINE [Suspect]
     Active Substance: CEDAZURIDINE\DECITABINE
     Dosage: 5 DF (5 PILLS /CYCLE OF 28 DAYS)
     Route: 048
  7. CEDAZURIDINE\DECITABINE [Suspect]
     Active Substance: CEDAZURIDINE\DECITABINE
     Dosage: UNK (3 PILLS/CYCLE)
     Route: 048

REACTIONS (20)
  - Hip arthroplasty [Unknown]
  - Bronchitis [Recovering/Resolving]
  - Cellulitis [Unknown]
  - Haemoglobin decreased [Unknown]
  - Neutrophil count decreased [Unknown]
  - Pneumonia [Recovering/Resolving]
  - Walking aid user [Unknown]
  - Eastern Cooperative Oncology Group performance status worsened [Unknown]
  - Limb injury [Unknown]
  - White blood cell count abnormal [Unknown]
  - Red blood cell count abnormal [Unknown]
  - Blood iron increased [Unknown]
  - Platelet count abnormal [Recovering/Resolving]
  - General physical health deterioration [Unknown]
  - Fatigue [Unknown]
  - Decreased immune responsiveness [Recovering/Resolving]
  - Sinusitis [Recovering/Resolving]
  - Platelet count decreased [Unknown]
  - Inappropriate schedule of product administration [Unknown]
  - Therapy interrupted [Unknown]

NARRATIVE: CASE EVENT DATE: 20220820
